FAERS Safety Report 9081764 (Version 1)
Quarter: 2013Q1

REPORT INFORMATION
  Report Type: Spontaneous
  Country: BR (occurrence: BR)
  Receive Date: 20130131
  Receipt Date: 20130131
  Transmission Date: 20140127
  Serious: Yes (Other)
  Sender: FDA-Public Use
  Company Number: BR-JNJFOC-20121100953

PATIENT
  Age: 45 Year
  Sex: Female
  Weight: 83 kg

DRUGS (5)
  1. REMICADE [Suspect]
     Indication: CROHN^S DISEASE
     Dosage: TOTAL OF 8 INFUSIONS
     Route: 042
     Dates: start: 201111, end: 201209
  2. AZATHIOPRINE [Concomitant]
     Route: 065
  3. MESALAZINE [Concomitant]
     Route: 065
  4. PURAN T4 [Concomitant]
     Route: 065
  5. ANTI-HISTAMINE [Concomitant]
     Indication: PREMEDICATION
     Route: 065

REACTIONS (6)
  - Blood pressure increased [Recovered/Resolved]
  - Infusion related reaction [Recovered/Resolved]
  - Enanthema [Unknown]
  - Arthralgia [Recovered/Resolved]
  - Weight increased [Unknown]
  - Headache [Recovered/Resolved]
